FAERS Safety Report 9613326 (Version 4)
Quarter: 2015Q4

REPORT INFORMATION
  Report Type: Report from Study
  Country: US (occurrence: US)
  Receive Date: 20131010
  Receipt Date: 20151021
  Transmission Date: 20160305
  Serious: Yes (Other)
  Sender: FDA-Public Use
  Company Number: US-ROCHE-1281444

PATIENT
  Age: 54 Year
  Sex: Female

DRUGS (15)
  1. AVASTIN [Suspect]
     Active Substance: BEVACIZUMAB
     Indication: MACULAR OEDEMA
  2. LUCENTIS [Suspect]
     Active Substance: RANIBIZUMAB
     Indication: MACULAR OEDEMA
  3. PROPARACAINE [Concomitant]
     Active Substance: PROPARACAINE
  4. AVASTIN [Suspect]
     Active Substance: BEVACIZUMAB
     Indication: DIABETIC RETINOPATHY
     Route: 065
  5. SYSTANE (HYPROMELLOSE 2910 (4000 MPA.S)) [Concomitant]
     Active Substance: HYPROMELLOSE 2910 (4000 MPA.S)
     Dosage: PRN
     Route: 065
  6. BALANCE (NUTRITIONAL SUPPLEMENT) [Concomitant]
     Dosage: PRN
     Route: 065
  7. OCUFLOX (UNITED STATES) [Concomitant]
  8. SIMBRINZA [Concomitant]
     Active Substance: BRIMONIDINE TARTRATE\BRINZOLAMIDE
  9. LUCENTIS [Suspect]
     Active Substance: RANIBIZUMAB
     Indication: DIABETIC RETINOPATHY
     Dosage: MOST RECENT DOSE DATE OF RANIBIZUMAB: 03/SEP/2013.
     Route: 050
  10. RESTASIS [Concomitant]
     Active Substance: CYCLOSPORINE
     Dosage: 12 HOURS, BID
     Route: 065
  11. BLINK TEARS [Concomitant]
     Active Substance: POLYETHYLENE GLYCOL 400
     Dosage: PRN
     Route: 065
  12. LIDOCAINE. [Concomitant]
     Active Substance: LIDOCAINE
  13. EPINEPHRINE. [Concomitant]
     Active Substance: EPINEPHRINE
  14. METFORMIN [Concomitant]
     Active Substance: METFORMIN HYDROCHLORIDE
     Route: 065
  15. LUCENTIS [Suspect]
     Active Substance: RANIBIZUMAB
     Indication: DIABETIC RETINAL OEDEMA

REACTIONS (7)
  - Vision blurred [Unknown]
  - Macular oedema [Recovering/Resolving]
  - Discomfort [Unknown]
  - Visual impairment [Unknown]
  - Punctate keratitis [Unknown]
  - Eye pain [Recovering/Resolving]
  - Dry eye [Recovering/Resolving]

NARRATIVE: CASE EVENT DATE: 20120917
